FAERS Safety Report 11241863 (Version 1)
Quarter: 2015Q3

REPORT INFORMATION
  Report Type: Spontaneous
  Country: US (occurrence: US)
  Receive Date: 20150706
  Receipt Date: 20150706
  Transmission Date: 20151125
  Serious: Yes (Hospitalization, Other)
  Sender: FDA-Public Use
  Company Number: US-PRINSTON PHARMACEUTICAL INC.-2015PRN00043

PATIENT
  Age: 12 Year
  Sex: Female
  Weight: 60 kg

DRUGS (2)
  1. BENAZEPRIL [Suspect]
     Active Substance: BENAZEPRIL HYDROCHLORIDE
     Dosage: 480 MG, ONCE
     Route: 048
  2. AMLODIPINE [Suspect]
     Active Substance: AMLODIPINE BESYLATE
     Dosage: 240 MG, ONCE
     Route: 048

REACTIONS (6)
  - Overdose [Recovered/Resolved]
  - Hyperdynamic left ventricle [Recovered/Resolved]
  - Toxicity to various agents [Recovered/Resolved]
  - Hypotension [Recovered/Resolved]
  - Pneumonia aspiration [Unknown]
  - Mental status changes [Recovered/Resolved]
